FAERS Safety Report 10406633 (Version 2)
Quarter: 2014Q3

REPORT INFORMATION
  Report Type: Spontaneous
  Country: US (occurrence: US)
  Receive Date: 20140825
  Receipt Date: 20140910
  Transmission Date: 20150326
  Serious: No
  Sender: FDA-Public Use
  Company Number: US-BAXTER-2014BAX046608

PATIENT
  Age: 37 Year
  Sex: Female

DRUGS (2)
  1. TISSEEL VH [Suspect]
     Active Substance: FIBRINOGEN HUMAN\THROMBIN HUMAN
     Indication: TISSUE SEALING
  2. TISSEEL VH [Suspect]
     Active Substance: FIBRINOGEN HUMAN\THROMBIN HUMAN
     Indication: HAEMOSTASIS
     Dosage: SPRAY TO INCISION
     Route: 061
     Dates: start: 20140322, end: 20140322

REACTIONS (4)
  - Discomfort [Unknown]
  - Dysphagia [Recovered/Resolved]
  - Musculoskeletal discomfort [Recovered/Resolved]
  - Pyrexia [Unknown]

NARRATIVE: CASE EVENT DATE: 2014
